FAERS Safety Report 9817758 (Version 1)
Quarter: 2014Q1

REPORT INFORMATION
  Report Type: Spontaneous
  Country: US (occurrence: None)
  Receive Date: 20140110
  Receipt Date: 20140110
  Transmission Date: 20141002
  Serious: Yes (Life-Threatening)
  Sender: FDA-Public Use
  Company Number: None

PATIENT
  Age: 83 Year
  Sex: Female

DRUGS (1)
  1. ADCIRCA [Suspect]
     Indication: PULMONARY HYPERTENSION
     Dosage: 2 TABS
     Route: 048
     Dates: start: 20131103, end: 20131105

REACTIONS (8)
  - Gastrointestinal disorder [None]
  - Malaise [None]
  - Nausea [None]
  - Diarrhoea [None]
  - Palpitations [None]
  - Headache [None]
  - Chills [None]
  - Tremor [None]
